FAERS Safety Report 5609698-3 (Version None)
Quarter: 2008Q1

REPORT INFORMATION
  Report Type: 
  Country: None (occurrence: None)
  Receive Date: 20080131
  Receipt Date: 20070227
  Transmission Date: 20080703
  Serious: No
  Sender: FDA-Public Use
  Company Number: US-BAYER-200710602BCC

PATIENT
  Age: 33 Year
  Sex: Male
  Weight: 113 kg

DRUGS (2)
  1. ALEVE COLD AND SINUS [Suspect]
     Indication: DRUG USE FOR UNKNOWN INDICATION
     Dosage: AS USED: 660/440 MG  UNIT DOSE: 220 MG
     Route: 048
     Dates: start: 20070223
  2. IBUPROFEN [Concomitant]

REACTIONS (2)
  - HEART RATE INCREASED [None]
  - MALAISE [None]
